FAERS Safety Report 6613934-4 (Version None)
Quarter: 2010Q1

REPORT INFORMATION
  Report Type: 
  Country: None (occurrence: None)
  Receive Date: 20100304
  Receipt Date: 20100224
  Transmission Date: 20100710
  Serious: Yes (Disabling, Other)
  Sender: FDA-Public Use
  Company Number: B0635550A

PATIENT
  Sex: Female

DRUGS (5)
  1. RANITIDINE [Suspect]
     Route: 065
     Dates: end: 20091222
  2. MAXALT [Concomitant]
     Route: 065
  3. RELIFEX [Concomitant]
     Route: 065
  4. CATAPRESAN [Concomitant]
     Route: 065
  5. LIVIAL [Concomitant]
     Route: 065

REACTIONS (1)
  - PSEUDOPORPHYRIA [None]
